FAERS Safety Report 14850254 (Version 1)
Quarter: 2018Q2

REPORT INFORMATION
  Report Type: Spontaneous
  Country: IE (occurrence: IE)
  Receive Date: 20180505
  Receipt Date: 20180505
  Transmission Date: 20180711
  Serious: Yes (Hospitalization, Other)
  Sender: FDA-Public Use
  Company Number: IE-TEVA-2018-IE-887439

PATIENT
  Age: 58 Year
  Sex: Male

DRUGS (11)
  1. METFORMIN (GENERIC) [Concomitant]
     Active Substance: METFORMIN HYDROCHLORIDE
  2. ASPIRIN (GENERIC) [Concomitant]
     Active Substance: ASPIRIN
  3. WARFARIN [Suspect]
     Active Substance: WARFARIN
     Route: 065
  4. COMBIVENT UDVS 500 MICROGRAMS/2.5 MG [Concomitant]
  5. ROSUVASTATIN. [Suspect]
     Active Substance: ROSUVASTATIN
     Route: 065
  6. ENOXAPARIN (GENERIC) [Concomitant]
     Active Substance: ENOXAPARIN
  7. PANTOPRAZOLE [Suspect]
     Active Substance: PANTOPRAZOLE
     Route: 065
  8. AMLODIPINE [Suspect]
     Active Substance: AMLODIPINE BESYLATE
     Route: 065
  9. INVOKANA [Suspect]
     Active Substance: CANAGLIFLOZIN
     Route: 048
  10. AUGMENTIN [Concomitant]
     Active Substance: AMOXICILLIN\CLAVULANATE POTASSIUM
  11. FRUMIL [Suspect]
     Active Substance: AMILORIDE HYDROCHLORIDE\FUROSEMIDE
     Route: 065

REACTIONS (1)
  - Diabetic ketoacidosis [Recovered/Resolved]

NARRATIVE: CASE EVENT DATE: 20180304
